FAERS Safety Report 7984253-9 (Version None)
Quarter: 2011Q4

REPORT INFORMATION
  Report Type: 
  Country: None (occurrence: None)
  Receive Date: 20111214
  Receipt Date: 20111128
  Transmission Date: 20120403
  Serious: Yes (Other)
  Sender: FDA-Public Use
  Company Number: 1000020162

PATIENT
  Age: 80 Year
  Sex: Male
  Weight: 75 kg

DRUGS (6)
  1. BUDESONIDE [Concomitant]
  2. IPRATROPIUM BROMIDE W/ SALBUTAMOL (IPRATROPIUM BROMIDE, SALBUTAMOL)(IP [Concomitant]
  3. ROFLUMILAST (ROFLUMILAST) (500 MICROGRAM, TABLETS) [Suspect]
     Indication: BRONCHITIS CHRONIC
     Dosage: 500 MCG (500 MCG, 1 IN 1 D),ORAL
     Route: 048
  4. ROFLUMILAST (ROFLUMILAST) (500 MICROGRAM, TABLETS) [Suspect]
     Indication: BRONCHIECTASIS
     Dosage: 500 MCG (500 MCG, 1 IN 1 D),ORAL
     Route: 048
  5. ROFLUMILAST (ROFLUMILAST) (500 MICROGRAM, TABLETS) [Suspect]
     Indication: ASTHMA
     Dosage: 500 MCG (500 MCG, 1 IN 1 D),ORAL
     Route: 048
  6. ROFLUMILAST (ROFLUMILAST) (500 MICROGRAM, TABLETS) [Suspect]
     Indication: CHRONIC OBSTRUCTIVE PULMONARY DISEASE
     Dosage: 500 MCG (500 MCG, 1 IN 1 D),ORAL
     Route: 048

REACTIONS (11)
  - DIARRHOEA [None]
  - FATIGUE [None]
  - NERVOUSNESS [None]
  - MALAISE [None]
  - MUSCLE SPASMS [None]
  - MYALGIA [None]
  - HEADACHE [None]
  - ASTHENIA [None]
  - ABDOMINAL PAIN [None]
  - TREMOR [None]
  - WEIGHT DECREASED [None]
